FAERS Safety Report 5335380-6 (Version None)
Quarter: 2007Q2

REPORT INFORMATION
  Report Type: 
  Country: None (occurrence: None)
  Receive Date: 20070327
  Receipt Date: 20060608
  Transmission Date: 20071010
  Serious: Yes (Other)
  Sender: FDA-Public Use
  Company Number: HQWYE058609JUN06

PATIENT
  Sex: Male

DRUGS (1)
  1. PROTONIX [Suspect]
     Indication: GASTROOESOPHAGEAL REFLUX DISEASE
     Dosage: 40 MG FREQUENCY UNSPECIFIED, ORAL
     Route: 048

REACTIONS (3)
  - DYSPHONIA [None]
  - HYPERSENSITIVITY [None]
  - LIP SWELLING [None]
